FAERS Safety Report 8557257-5 (Version None)
Quarter: 2012Q3

REPORT INFORMATION
  Report Type: 
  Country: None (occurrence: None)
  Receive Date: 20120801
  Receipt Date: 20120730
  Transmission Date: 20120928
  Serious: No
  Sender: FDA-Public Use
  Company Number: US-BAYER-2012-077091

PATIENT

DRUGS (1)
  1. ULTRAVIST 150 [Suspect]

REACTIONS (1)
  - URTICARIA [None]
